FAERS Safety Report 23238116 (Version 1)
Quarter: 2023Q4

REPORT INFORMATION
  Report Type: Spontaneous
  Country: FR (occurrence: FR)
  Receive Date: 20231129
  Receipt Date: 20231129
  Transmission Date: 20240110
  Serious: Yes (Other)
  Sender: FDA-Public Use
  Company Number: FR-002147023-PHHY2018FR024994

PATIENT
  Age: 78 Year
  Sex: Female
  Weight: 51 kg

DRUGS (6)
  1. OXALIPLATIN [Suspect]
     Active Substance: OXALIPLATIN
     Indication: Product used for unknown indication
     Dosage: 128 MG, (EVERY 15 DAYS)
     Route: 065
     Dates: start: 20180305
  2. OXALIPLATIN [Suspect]
     Active Substance: OXALIPLATIN
     Dosage: 102 MG, EVERY 15 DAYS
     Route: 065
     Dates: start: 20180502
  3. LEUCOVORIN CALCIUM [Suspect]
     Active Substance: LEUCOVORIN CALCIUM
     Indication: Product used for unknown indication
     Dosage: 300 MG, EVERY 15 DAYS
     Route: 065
     Dates: start: 20180305
  4. FLUOROURACIL [Suspect]
     Active Substance: FLUOROURACIL
     Indication: Product used for unknown indication
     Dosage: 3600 MG, EVERY 15 DAYS
     Route: 065
  5. FLUOROURACIL [Suspect]
     Active Substance: FLUOROURACIL
     Dosage: 600 MG, EVERY 15 DAYS
     Route: 065
     Dates: start: 20180305
  6. AFINITOR [Suspect]
     Active Substance: EVEROLIMUS
     Indication: Pancreatic neuroendocrine tumour metastatic
     Dosage: 10 MILLIGRAM, DAILY
     Route: 065
     Dates: start: 20170712, end: 20180115

REACTIONS (5)
  - Neuropathy peripheral [Not Recovered/Not Resolved]
  - Malignant neoplasm progression [Unknown]
  - Pancreatic neuroendocrine tumour metastatic [Unknown]
  - Drug intolerance [Unknown]
  - Thrombocytopenia [Recovered/Resolved]

NARRATIVE: CASE EVENT DATE: 20180425
